FAERS Safety Report 25014276 (Version 1)
Quarter: 2025Q1

REPORT INFORMATION
  Report Type: Spontaneous
  Country: US (occurrence: US)
  Receive Date: 20250226
  Receipt Date: 20250226
  Transmission Date: 20250409
  Serious: No
  Sender: ROCHE
  Company Number: US-ROCHE-10000208718

PATIENT
  Sex: Female

DRUGS (1)
  1. ACTEMRA [Suspect]
     Active Substance: TOCILIZUMAB
     Indication: Rheumatoid arthritis
     Dosage: STRENGTH: 200MG/10ML ?STRENGTH: 80MG/4ML
     Route: 042
     Dates: start: 202501

REACTIONS (4)
  - Pain [Unknown]
  - Ill-defined disorder [Unknown]
  - Off label use [Unknown]
  - Movement disorder [Unknown]
